FAERS Safety Report 5246686-3 (Version None)
Quarter: 2007Q1

REPORT INFORMATION
  Report Type: 
  Country: None (occurrence: None)
  Receive Date: 20070226
  Receipt Date: 20070214
  Transmission Date: 20070707
  Serious: Yes (Hospitalization)
  Sender: FDA-Public Use
  Company Number: FR-NOVOPROD-260840

PATIENT
  Age: 74 Year
  Sex: Female

DRUGS (8)
  1. NOVOLOG MIX 70/30 [Suspect]
     Indication: INSULIN-REQUIRING TYPE II DIABETES MELLITUS
     Route: 058
  2. GLUCOPHAGE [Concomitant]
     Route: 048
  3. SELOKEN                            /00376902/ [Concomitant]
     Route: 048
  4. TRIATEC [Concomitant]
     Route: 048
  5. KARDEGIC                           /00002703/ [Concomitant]
     Route: 048
  6. LYRICA [Concomitant]
     Route: 048
  7. PLAVIX [Concomitant]
  8. ADANCOR [Concomitant]

REACTIONS (1)
  - THROMBOCYTOPENIA [None]
